FAERS Safety Report 9229915 (Version 1)
Quarter: 2013Q2

REPORT INFORMATION
  Report Type: Spontaneous
  Country: US (occurrence: None)
  Receive Date: 20130412
  Receipt Date: 20130412
  Transmission Date: 20140414
  Serious: Yes (Hospitalization)
  Sender: FDA-Public Use
  Company Number: None

PATIENT
  Age: 73 Year
  Sex: Male
  Weight: 102.3 kg

DRUGS (17)
  1. RIVAROXABAN [Suspect]
     Indication: ATRIAL FIBRILLATION
     Dates: start: 201208
  2. RIVAROXABAN [Suspect]
     Dates: start: 201208
  3. ASPIRIN EC [Suspect]
  4. ALPRAZOLAM [Concomitant]
  5. VITAMIN C [Concomitant]
  6. ATORVASTATIN [Concomitant]
  7. WELCHOL [Concomitant]
  8. VITAMIN B12 [Concomitant]
  9. CYMBALTA [Concomitant]
  10. AVODART [Concomitant]
  11. FLONASE [Concomitant]
  12. FUROSEMIDE [Concomitant]
  13. GABAPENTIN [Concomitant]
  14. VICODIN [Concomitant]
  15. GNC [Concomitant]
  16. IMDUR [Concomitant]
  17. LISINOPRIL [Concomitant]

REACTIONS (2)
  - Haematochezia [None]
  - Abdominal pain [None]
